FAERS Safety Report 8329754-9 (Version None)
Quarter: 2012Q2

REPORT INFORMATION
  Report Type: 
  Country: None (occurrence: None)
  Receive Date: 20120502
  Receipt Date: 20091014
  Transmission Date: 20120825
  Serious: No
  Sender: FDA-Public Use
  Company Number: US-TEVA-2009011478

PATIENT
  Sex: Female

DRUGS (2)
  1. NUVIGIL [Suspect]
     Indication: CIRCADIAN RHYTHM SLEEP DISORDER
     Dosage: 750 MILLIGRAM; 750
     Route: 048
     Dates: start: 20091009
  2. NUVIGIL [Suspect]
     Indication: COGNITIVE DISORDER

REACTIONS (1)
  - DRUG PRESCRIBING ERROR [None]
